FAERS Safety Report 8987829 (Version 1)
Quarter: 2012Q4

REPORT INFORMATION
  Report Type: 
  Country: US (occurrence: US)
  Receive Date: 20121227
  Receipt Date: 20121227
  Transmission Date: 20130627
  Serious: Yes (Other)
  Sender: FDA-Public Use
  Company Number: US-GLAXOSMITHKLINE-A1002262A

PATIENT
  Age: 81 Year
  Sex: Male
  Weight: 86.4 kg

DRUGS (8)
  1. VOTRIENT [Suspect]
     Indication: RENAL CANCER METASTATIC
     Dosage: 800MG Per day
     Route: 048
     Dates: start: 20110311
  2. ZOMETA [Concomitant]
     Route: 042
     Dates: start: 201105
  3. VITAMIN B12 [Concomitant]
     Route: 058
     Dates: start: 201210
  4. FLOMAX [Concomitant]
     Dosage: .4MG Per day
     Route: 048
  5. LISINOPRIL [Concomitant]
     Dosage: 20MG Per day
     Route: 048
  6. ASPIRIN [Concomitant]
     Dosage: 81MG Per day
     Route: 048
  7. LEVOTHYROXINE [Concomitant]
     Route: 048
  8. HCTZ [Concomitant]
     Dosage: 50MG Per day
     Route: 048

REACTIONS (3)
  - Drug ineffective [Recovering/Resolving]
  - Renal cancer [Unknown]
  - Metastases to liver [Unknown]
